FAERS Safety Report 7540143-7 (Version None)
Quarter: 2011Q2

REPORT INFORMATION
  Report Type: 
  Country: None (occurrence: None)
  Receive Date: 20110610
  Receipt Date: 20110602
  Transmission Date: 20111010
  Serious: Yes (Other)
  Sender: FDA-Public Use
  Company Number: US-AMGEN-USASP2011017890

PATIENT
  Age: 51 Year
  Sex: Female

DRUGS (2)
  1. ENBREL [Suspect]
     Indication: RHEUMATOID ARTHRITIS
     Dosage: 50 MG, QWK
     Dates: start: 20100601
  2. METHOTREXATE [Concomitant]
     Dosage: 1 MG, QWK
     Dates: start: 20080101

REACTIONS (5)
  - PERICARDIAL EFFUSION [None]
  - RESPIRATORY TRACT CONGESTION [None]
  - HEADACHE [None]
  - PLEURAL EFFUSION [None]
  - PRODUCTIVE COUGH [None]
